FAERS Safety Report 8624090 (Version 2)
Quarter: 2012Q4

REPORT INFORMATION
  Report Type: 
  Country: BR (occurrence: BR)
  Receive Date: 20120620
  Receipt Date: 20121017
  Transmission Date: 20130627
  Serious: Yes (Hospitalization, Other)
  Sender: FDA-Public Use
  Company Number: BR-ASTRAZENECA-2012SE39549

PATIENT
  Age: 56 Year
  Sex: Female
  Weight: 70 kg

DRUGS (6)
  1. CRESTOR [Suspect]
     Indication: BLOOD CHOLESTEROL INCREASED
     Route: 048
     Dates: start: 2010, end: 201003
  2. SOMALGIN CARDIO [Suspect]
     Route: 048
     Dates: start: 2006, end: 201210
  3. PURAN T4 [Concomitant]
     Route: 048
  4. BENICAR [Concomitant]
     Indication: HYPERTENSION
     Route: 048
     Dates: start: 2006
  5. NATRILIX [Concomitant]
     Indication: HYPERTENSION
     Route: 048
     Dates: start: 2006
  6. LEXAPRO [Concomitant]
     Indication: ANXIETY
     Route: 048
     Dates: start: 2011

REACTIONS (10)
  - Melanocytic naevus [Not Recovered/Not Resolved]
  - Cerebrovascular accident [Recovered/Resolved]
  - Migraine [Recovered/Resolved]
  - Convulsion [Recovered/Resolved]
  - Speech disorder [Unknown]
  - Cerebrovascular accident [Unknown]
  - Confusional state [Unknown]
  - Dizziness [Unknown]
  - Haematoma [Unknown]
  - Wound haemorrhage [Unknown]
